FAERS Safety Report 4726785-2 (Version None)
Quarter: 2005Q3

REPORT INFORMATION
  Report Type: 
  Country: None (occurrence: None)
  Receive Date: 20050725
  Receipt Date: 20050425
  Transmission Date: 20060218
  Serious: Yes (Hospitalization)
  Sender: FDA-Public Use
  Company Number: USA050496465

PATIENT
  Age: 9 Year
  Sex: Male
  Weight: 32 kg

DRUGS (2)
  1. STRATTERA [Suspect]
     Indication: ATTENTION DEFICIT/HYPERACTIVITY DISORDER
     Dosage: 60 MG IN THE MORNING
     Dates: end: 20050401
  2. ZYPREXA [Suspect]
     Indication: ABNORMAL BEHAVIOUR
     Dosage: 5 MG AT BEDTIME
     Dates: end: 20050401

REACTIONS (2)
  - HYPERSENSITIVITY [None]
  - PRESCRIBED OVERDOSE [None]
